FAERS Safety Report 22091162 (Version 3)
Quarter: 2024Q4

REPORT INFORMATION
  Report Type: Report from Study
  Country: CN (occurrence: CN)
  Receive Date: 20230314
  Receipt Date: 20241229
  Transmission Date: 20250115
  Serious: Yes (Other)
  Sender: ROCHE
  Company Number: CN-ROCHE-3280470

PATIENT
  Age: 58 Year
  Sex: Female
  Weight: 60.5 kg

DRUGS (42)
  1. ALECTINIB [Suspect]
     Active Substance: ALECTINIB
     Indication: Non-small cell lung cancer metastatic
     Route: 048
     Dates: start: 20211126
  2. ALECTINIB [Suspect]
     Active Substance: ALECTINIB
     Route: 048
     Dates: start: 20181019
  3. ALLOPURINOL [Concomitant]
     Active Substance: ALLOPURINOL
     Indication: Hyperuricaemia
     Route: 048
     Dates: start: 20230201, end: 202303
  4. SITAGLIPTIN PHOSPHATE [Concomitant]
     Active Substance: SITAGLIPTIN PHOSPHATE
     Indication: Type 2 diabetes mellitus
     Dosage: SYMPTOMATIC TREATMENT OF TYPE 2 DIABETES
     Route: 048
     Dates: start: 2020
  5. HERBALS [Concomitant]
     Active Substance: HERBALS
     Dosage: SYMPTOMATIC TREATMENT OF FATTY LIVER
     Route: 050
     Dates: start: 20221225, end: 20221227
  6. HERBALS [Concomitant]
     Active Substance: HERBALS
     Dosage: SYMPTOMATIC TREATMENT OF FATTY LIVER
     Route: 050
     Dates: start: 20220426, end: 20220429
  7. HERBALS [Concomitant]
     Active Substance: HERBALS
     Dosage: SYMPTOMATIC TREATMENT OF FATTY LIVER
     Route: 050
     Dates: start: 20220518, end: 20220519
  8. HERBALS [Concomitant]
     Active Substance: HERBALS
     Dosage: SYMPTOMATIC TREATMENT OF FATTY LIVER
     Route: 050
     Dates: start: 20220615, end: 20220618
  9. HERBALS [Concomitant]
     Active Substance: HERBALS
     Dosage: SYMPTOMATIC TREATMENT OF FATTY LIVER
     Route: 050
     Dates: start: 20220719, end: 20220721
  10. HERBALS [Concomitant]
     Active Substance: HERBALS
     Dosage: SYMPTOMATIC TREATMENT OF FATTY LIVER
     Route: 050
     Dates: start: 20220802, end: 20220804
  11. HERBALS [Concomitant]
     Active Substance: HERBALS
     Dosage: SYMPTOMATIC TREATMENT OF FATTY LIVER
     Route: 050
     Dates: start: 20220829, end: 20220902
  12. ACETYLCYSTEINE [Concomitant]
     Active Substance: ACETYLCYSTEINE
     Dosage: SYMPTOMATIC TREATMENT OF VIRAL PNEUMONIA
     Route: 048
     Dates: start: 20221217, end: 20230104
  13. MANNATIDE [Concomitant]
     Dosage: INCRASING IMMUNNITY
     Route: 050
     Dates: start: 20221225, end: 20221227
  14. MANNATIDE [Concomitant]
     Dosage: INCRASING IMMUNNITY
     Route: 050
     Dates: start: 20220518, end: 20220521
  15. MANNATIDE [Concomitant]
     Dosage: INCRASING IMMUNNITY
     Route: 050
     Dates: start: 20220927, end: 20220930
  16. PAMIDRONATE DISODIUM AND GLUCOSE [Concomitant]
     Dosage: TREATMENT OF BONE METASTASES
     Route: 050
     Dates: start: 20220426, end: 20220427
  17. PAMIDRONATE DISODIUM AND GLUCOSE [Concomitant]
     Dosage: TREATMENT OF BONE METASTASES
     Route: 050
     Dates: start: 20220518, end: 20220519
  18. PAMIDRONATE DISODIUM AND GLUCOSE [Concomitant]
     Dosage: TREATMENT OF BONE METASTASES
     Route: 050
     Dates: start: 20220927, end: 20220928
  19. ATORVASTATIN CALCIUM [Concomitant]
     Active Substance: ATORVASTATIN CALCIUM
     Dosage: SYMPTOMATIC TREATMENT OF FATTY LIVER
     Route: 048
     Dates: start: 20220426, end: 20220429
  20. LIVE COMBINED BIFIDOBACTERIUM, LACTOBACILLUS AND ENTEROCOCCUS [Concomitant]
     Dosage: SYMPTOMATIC TREATMENT OF DIARRHEA
     Route: 048
     Dates: start: 20220426, end: 20220429
  21. CEFDINIR [Concomitant]
     Active Substance: CEFDINIR
     Dosage: SYMPTOMATIC TREATMENT OF URINARY TRACT INFECTION
     Route: 048
     Dates: start: 20220615, end: 20220618
  22. SODIUM BICARBONATE [Concomitant]
     Active Substance: SODIUM BICARBONATE
     Route: 048
     Dates: start: 20220615, end: 20220618
  23. RABEPRAZOLE SODIUM [Concomitant]
     Active Substance: RABEPRAZOLE SODIUM
     Dosage: SYMPTOMATIC TREATMENT OF GASTROINTESTINAL REACTIONS
     Route: 048
     Dates: start: 20220721, end: 20220725
  24. HEART TREASURE PILL [Concomitant]
     Indication: Heart rate
     Route: 048
     Dates: start: 20230828
  25. HERBALS [Concomitant]
     Active Substance: HERBALS
     Dates: start: 20230130, end: 20230201
  26. HERBALS [Concomitant]
     Active Substance: HERBALS
     Dates: start: 20230320, end: 20230323
  27. HERBALS [Concomitant]
     Active Substance: HERBALS
     Dates: start: 20230424, end: 20230426
  28. HERBALS [Concomitant]
     Active Substance: HERBALS
     Dates: start: 20230530, end: 20230531
  29. HERBALS [Concomitant]
     Active Substance: HERBALS
     Route: 042
     Dates: start: 20230619, end: 20230621
  30. LEVOFLOXACIN [Concomitant]
     Active Substance: LEVOFLOXACIN
  31. PHOSPHOLIPID [Concomitant]
     Active Substance: PHOSPHOLIPID
  32. PAMIDRONATE DISODIUM AND GLUCOSE [Concomitant]
  33. RABEPRAZOLE [Concomitant]
     Active Substance: RABEPRAZOLE
  34. LEVOFLOXACIN HYDROCHLORIDE [Concomitant]
     Active Substance: LEVOFLOXACIN HYDROCHLORIDE
  35. FEBUXOSTAT [Concomitant]
     Active Substance: FEBUXOSTAT
     Indication: Hyperuricaemia
     Route: 048
     Dates: start: 20231121, end: 20231123
  36. FEBUXOSTAT [Concomitant]
     Active Substance: FEBUXOSTAT
     Route: 048
     Dates: start: 20240809
  37. URSODEOXYCHOLIC ACID CAPSULES [Concomitant]
     Indication: Hepatic steatosis
     Route: 048
     Dates: start: 20240809
  38. SHENGXUE BAO MIXTURE [Concomitant]
     Indication: Anaemia
     Route: 048
     Dates: start: 20240911
  39. COMPOUND YIGANLING CAPSULE [Concomitant]
     Indication: Blood bilirubin increased
     Route: 048
     Dates: start: 20240911
  40. DISUMAB INJECTION [Concomitant]
     Indication: Metastases to bone
     Dosage: FREQUENCY: UNKNOWN
     Route: 042
     Dates: start: 20241022, end: 20241022
  41. DISUMAB INJECTION [Concomitant]
     Dosage: FREQUENCY: UNKNOWN
     Route: 042
     Dates: start: 20240911, end: 20240911
  42. BRUCEA OIL CAPSULES [Concomitant]
     Route: 048
     Dates: start: 20240912

REACTIONS (3)
  - COVID-19 [Recovered/Resolved]
  - Pneumonia viral [Not Recovered/Not Resolved]
  - Gastrointestinal disorder [Recovered/Resolved]

NARRATIVE: CASE EVENT DATE: 20220517
